FAERS Safety Report 9725406 (Version 6)
Quarter: 2014Q4

REPORT INFORMATION
  Report Type: Report from Study
  Country: GB (occurrence: GB)
  Receive Date: 20131203
  Receipt Date: 20141212
  Transmission Date: 20150529
  Serious: Yes (Hospitalization)
  Sender: FDA-Public Use
  Company Number: GB-NOVOPROD-393136

PATIENT
  Age: 67 Year
  Sex: Female
  Weight: 79.4 kg

DRUGS (1)
  1. LIRAGLUTIDE FLEXPEN [Suspect]
     Active Substance: LIRAGLUTIDE
     Indication: TYPE 2 DIABETES MELLITUS
     Dosage: 1.8,MG,QD
     Route: 058
     Dates: start: 20120214

REACTIONS (1)
  - Parathyroid tumour benign [Recovered/Resolved]

NARRATIVE: CASE EVENT DATE: 20131023
